FAERS Safety Report 25488546 (Version 2)
Quarter: 2025Q3

REPORT INFORMATION
  Report Type: Spontaneous
  Country: US (occurrence: US)
  Receive Date: 20250627
  Receipt Date: 20250725
  Transmission Date: 20251021
  Serious: Yes (Hospitalization, Other)
  Sender: BRISTOL-MYERS SQUIBB COMPANY
  Company Number: US-BRISTOL-MYERS SQUIBB COMPANY-2025-091338

PATIENT
  Age: 70 Year
  Sex: Male

DRUGS (2)
  1. LENALIDOMIDE [Suspect]
     Active Substance: LENALIDOMIDE
     Indication: Plasma cell myeloma
     Dosage: TAKE 1 WHOLE CAPSULE BY MOUTH W/ OR W/O FOOD IN THE MORNING FOR 14 DAYS THEN OFF 7 DAYS FOR A 21 DAY
     Route: 048
  2. LENALIDOMIDE [Suspect]
     Active Substance: LENALIDOMIDE
     Dosage: 10 MG OR TAKE 1 WHOLE CAPSULE BY MOUTH W/ OR W/O FOOD IN THE MORNING FOR 21 DAYS THEN OFF 7 DAYS. DO
     Route: 048

REACTIONS (2)
  - Catheter site thrombosis [Recovered/Resolved]
  - Night sweats [Recovering/Resolving]
